FAERS Safety Report 8915138 (Version 1)
Quarter: 2012Q4

REPORT INFORMATION
  Report Type: 
  Country: DE (occurrence: DE)
  Receive Date: 20121119
  Receipt Date: 20121119
  Transmission Date: 20130627
  Serious: Yes (Other)
  Sender: FDA-Public Use
  Company Number: DE-TEVA-361479GER

PATIENT
  Age: 62 None
  Sex: Male
  Weight: 90 kg

DRUGS (9)
  1. BECLOMETASONE [Suspect]
     Indication: BRONCHITIS CHRONIC
     Dosage: .4 Milligram Daily;
     Route: 055
     Dates: start: 20120907, end: 20120921
  2. ASS 100 [Concomitant]
     Dates: start: 1992, end: 2002
  3. ASS 100 [Concomitant]
     Dates: start: 201207
  4. ISOKET [Concomitant]
     Dosage: 40 Milligram Daily;
  5. METOPROLOL [Concomitant]
  6. DELIX [Concomitant]
     Dosage: 2.5 Milligram Daily;
  7. RAMIPRIL 2.5 [Concomitant]
  8. SIMVASTATIN 20 MG [Concomitant]
  9. NYSTATIN GEL [Concomitant]
     Indication: ORAL CANDIDIASIS

REACTIONS (9)
  - Systemic candida [Recovering/Resolving]
  - Haemoptysis [Recovering/Resolving]
  - Pleuritic pain [Recovering/Resolving]
  - Pyrexia [Recovered/Resolved]
  - Pruritus [Recovering/Resolving]
  - Pruritus [Recovering/Resolving]
  - Decreased immune responsiveness [Recovering/Resolving]
  - Chest pain [Recovered/Resolved]
  - Dyspnoea [Recovered/Resolved]
